FAERS Safety Report 6224936-4 (Version None)
Quarter: 2009Q2

REPORT INFORMATION
  Report Type: 
  Country: None (occurrence: None)
  Receive Date: 20090612
  Receipt Date: 20090402
  Transmission Date: 20091009
  Serious: No
  Sender: FDA-Public Use
  Company Number: US-ABBOTT-09P-163-0566273-00

PATIENT
  Sex: Female
  Weight: 95.34 kg

DRUGS (2)
  1. HUMIRA [Suspect]
     Indication: RHEUMATOID ARTHRITIS
     Dates: start: 20090319
  2. GLYBURIDE [Concomitant]
     Indication: DIABETES MELLITUS
     Dosage: NOT REPORTED

REACTIONS (5)
  - HEADACHE [None]
  - MENSTRUATION DELAYED [None]
  - NAUSEA [None]
  - PAIN [None]
  - VOMITING [None]
